FAERS Safety Report 15547808 (Version 1)
Quarter: 2018Q4

REPORT INFORMATION
  Report Type: Report from Study
  Country: US (occurrence: US)
  Receive Date: 20181024
  Receipt Date: 20181024
  Transmission Date: 20190205
  Serious: Yes (Hospitalization)
  Sender: FDA-Public Use
  Company Number: US-PFIZER INC-2018431090

PATIENT
  Age: 58 Year
  Sex: Male
  Weight: 81 kg

DRUGS (4)
  1. TACROLIMUS. [Suspect]
     Active Substance: TACROLIMUS
     Indication: PROPHYLAXIS
     Dosage: UNK, DAILY
     Route: 042
     Dates: start: 20180409, end: 20180501
  2. PREDNISONE. [Suspect]
     Active Substance: PREDNISONE
     Indication: ACUTE GRAFT VERSUS HOST DISEASE
     Dosage: 100 MG, BID AND TAPER
     Route: 048
     Dates: start: 20180512, end: 20180628
  3. BLINDED THERAPY [Suspect]
     Active Substance: INVESTIGATIONAL PRODUCT
     Indication: ACUTE GRAFT VERSUS HOST DISEASE
     Dosage: INCB039110 OR PLACEBO, 200 MG QD
     Route: 048
     Dates: start: 20180505, end: 20180604
  4. METHYLPREDNISOLONE SODIUM SUCCINATE. [Suspect]
     Active Substance: METHYLPREDNISOLONE SODIUM SUCCINATE
     Indication: ACUTE GRAFT VERSUS HOST DISEASE
     Dosage: 90 MG, 2X/DAY
     Route: 042
     Dates: start: 20180504, end: 20180511

REACTIONS (5)
  - Herpes simplex [Recovered/Resolved]
  - Bone marrow failure [Recovered/Resolved]
  - Transplant dysfunction [Recovered/Resolved]
  - Adenovirus infection [Recovered/Resolved]
  - Urinary tract infection [Recovered/Resolved]

NARRATIVE: CASE EVENT DATE: 20180603
